FAERS Safety Report 9257314 (Version 1)
Quarter: 2013Q1

REPORT INFORMATION
  Report Type: Spontaneous
  Country: US (occurrence: None)
  Receive Date: 20121212
  Receipt Date: 20121212
  Transmission Date: 20140127
  Serious: No
  Sender: FDA-Public Use
  Company Number: 1209USA007122

PATIENT
  Sex: Female

DRUGS (3)
  1. REBETOL [Suspect]
     Indication: HEPATITIS C
     Dosage: UNK, ORAL
     Route: 048
     Dates: start: 20120330
  2. PEGINTRON [Suspect]
     Indication: HEPATITIS C
     Dosage: UNK, SUBCUTANEOUS
     Route: 058
     Dates: start: 20120330
  3. VICTRELIS [Suspect]
     Indication: HEPATITIS C
     Dosage: UNK, ORAL
     Route: 048
     Dates: start: 20120427

REACTIONS (9)
  - Mental disorder [None]
  - Blood disorder [None]
  - Haemoglobin decreased [None]
  - Malaise [None]
  - Viral infection [None]
  - Fatigue [None]
  - Headache [None]
  - Dyspnoea [None]
  - Chest pain [None]
